FAERS Safety Report 7026467-0 (Version None)
Quarter: 2010Q4

REPORT INFORMATION
  Report Type: 
  Country: None (occurrence: None)
  Receive Date: 20101004
  Receipt Date: 20100921
  Transmission Date: 20110411
  Serious: Yes (Life-Threatening, Hospitalization, Other)
  Sender: FDA-Public Use
  Company Number: US-ELI_LILLY_AND_COMPANY-US201009005967

PATIENT
  Age: 46 Year
  Sex: Female

DRUGS (8)
  1. OLANZAPINE [Suspect]
     Dosage: 5 MG, DAILY (1/D)
  2. CITALOPRAM HYDROBROMIDE [Concomitant]
     Dosage: 10 MG, DAILY (1/D)
  3. ZOLPIDEM [Concomitant]
     Dosage: 12.5 MG, AS NEEDED
  4. METAXALONE [Concomitant]
     Dosage: 800 MG, 2/D
  5. INSULIN GLARGINE [Concomitant]
     Dosage: 60 U, EACH EVENING
  6. INSULIN LISPRO [Concomitant]
     Dosage: UNK, AS NEEDED
  7. TRAMADOL HCL [Concomitant]
  8. ALCOHOL [Concomitant]

REACTIONS (4)
  - DRUG INTERACTION [None]
  - SEROTONIN SYNDROME [None]
  - THROMBOCYTOPENIA [None]
  - URINARY TRACT INFECTION [None]
